FAERS Safety Report 6969963-4 (Version None)
Quarter: 2010Q3

REPORT INFORMATION
  Report Type: 
  Country: None (occurrence: None)
  Receive Date: 20100908
  Receipt Date: 20100826
  Transmission Date: 20110219
  Serious: Yes (Hospitalization)
  Sender: FDA-Public Use
  Company Number: PHHY2010US31446

PATIENT
  Sex: Male

DRUGS (2)
  1. EXJADE [Suspect]
     Indication: IRON OVERLOAD
     Dosage: 500 MG, TID
     Route: 048
     Dates: start: 20000514
  2. VANCOMYCIN [Concomitant]

REACTIONS (6)
  - CELLULITIS [None]
  - OSTEOMYELITIS [None]
  - RASH [None]
  - SKIN ULCER [None]
  - TREATMENT NONCOMPLIANCE [None]
  - WOUND INFECTION [None]
